FAERS Safety Report 5335970-0 (Version None)
Quarter: 2007Q1

REPORT INFORMATION
  Report Type: 
  Country: None (occurrence: None)
  Receive Date: 20070305
  Receipt Date: 20060531
  Transmission Date: 20070707
  Serious: Yes (Other)
  Sender: FDA-Public Use
  Company Number: USGLA-S-20060011

PATIENT
  Age: 79 Year
  Sex: Female

DRUGS (1)
  1. NAVELBINE [Suspect]
     Indication: BREAST CANCER

REACTIONS (3)
  - EAR PAIN [None]
  - MUSCULOSKELETAL CHEST PAIN [None]
  - NECK PAIN [None]
